FAERS Safety Report 13455857 (Version 1)
Quarter: 2017Q2

REPORT INFORMATION
  Report Type: Spontaneous
  Country: US (occurrence: US)
  Receive Date: 20170419
  Receipt Date: 20170419
  Transmission Date: 20170830
  Serious: Yes (Other)
  Sender: FDA-Public Use
  Company Number: US-GLAXOSMITHKLINE-US2015186857

PATIENT
  Age: 78 Year
  Sex: Male

DRUGS (6)
  1. DOCETAXEL. [Interacting]
     Active Substance: DOCETAXEL
     Indication: PROSTATE CANCER METASTATIC
     Dosage: EVERY 3 WEEK DOSING (75 MG/ M2, TOTAL DOSE = 134 MG)
  2. LEUPROLIDE [Concomitant]
     Active Substance: LEUPROLIDE
     Indication: PROSTATE CANCER METASTATIC
  3. DRONEDARONE [Interacting]
     Active Substance: DRONEDARONE
  4. BICALUTAMIDE. [Interacting]
     Active Substance: BICALUTAMIDE
     Indication: PROSTATE CANCER METASTATIC
  5. CARVEDILOL. [Suspect]
     Active Substance: CARVEDILOL
  6. DOCETAXEL. [Interacting]
     Active Substance: DOCETAXEL
     Dosage: WEEKLY DOSING (30 MG/M2 WEEKLY, TOTAL DOSE= 54 MG)

REACTIONS (2)
  - Cholangitis sclerosing [Unknown]
  - Drug interaction [Unknown]
